FAERS Safety Report 24969301 (Version 1)
Quarter: 2025Q1

REPORT INFORMATION
  Report Type: Other
  Country: GB (occurrence: GB)
  Receive Date: 20250214
  Receipt Date: 20250214
  Transmission Date: 20250409
  Serious: Yes (Hospitalization)
  Sender: HARMONY BIOSCIENCES
  Company Number: GB-HARMONY BIOSCIENCES-2025HMY00234

PATIENT

DRUGS (3)
  1. PITOLISANT [Suspect]
     Active Substance: PITOLISANT
     Indication: Narcolepsy
     Dosage: 9 MG, 1X/DAY
     Route: 065
     Dates: end: 20240103
  2. METHYLPHENIDATE [Concomitant]
     Active Substance: METHYLPHENIDATE
     Indication: Narcolepsy
  3. CITALOPRAM [Concomitant]
     Active Substance: CITALOPRAM
     Indication: Depression

REACTIONS (1)
  - Heavy menstrual bleeding [Recovered/Resolved]
